FAERS Safety Report 6896282-7 (Version None)
Quarter: 2010Q3

REPORT INFORMATION
  Report Type: 
  Country: None (occurrence: None)
  Receive Date: 20100802
  Receipt Date: 20100726
  Transmission Date: 20110219
  Serious: Yes (Other)
  Sender: FDA-Public Use
  Company Number: B0667732A

PATIENT
  Age: 87 Year
  Sex: Female

DRUGS (4)
  1. AUGMENTIN '125' [Suspect]
     Indication: WOUND INFECTION
     Dosage: 3IUAX PER DAY
     Route: 048
     Dates: start: 20100716, end: 20100717
  2. RHEUMATREX [Concomitant]
     Indication: RHEUMATOID ARTHRITIS
     Route: 048
  3. PREDNISOLONE [Concomitant]
     Indication: RHEUMATOID ARTHRITIS
     Route: 065
  4. GENTAMICIN [Concomitant]
     Indication: WOUND INFECTION
     Route: 061

REACTIONS (1)
  - BLINDNESS TRANSIENT [None]
